FAERS Safety Report 16265155 (Version 2)
Quarter: 2019Q2

REPORT INFORMATION
  Report Type: Spontaneous
  Country: JP (occurrence: JP)
  Receive Date: 20190502
  Receipt Date: 20190621
  Transmission Date: 20190711
  Serious: Yes (Hospitalization, Other)
  Sender: FDA-Public Use
  Company Number: JP-ASTRAZENECA-2019SE64756

PATIENT
  Age: 63 Year
  Sex: Male
  Weight: 91 kg

DRUGS (2)
  1. PITAVASTATIN CA [Concomitant]
     Active Substance: PITAVASTATIN CALCIUM
     Dosage: DOSE UNKNOWN
     Route: 048
  2. FORXIGA [Suspect]
     Active Substance: DAPAGLIFLOZIN
     Indication: DIABETES MELLITUS
     Route: 048
     Dates: end: 20190412

REACTIONS (6)
  - Loss of consciousness [Recovering/Resolving]
  - Hyperventilation [Unknown]
  - Hypertension [Unknown]
  - Euglycaemic diabetic ketoacidosis [Recovered/Resolved]
  - Atrial fibrillation [Unknown]
  - Angina unstable [Unknown]

NARRATIVE: CASE EVENT DATE: 201904
